FAERS Safety Report 5225960-0 (Version None)
Quarter: 2007Q1

REPORT INFORMATION
  Report Type: 
  Country: None (occurrence: None)
  Receive Date: 20070201
  Receipt Date: 20070129
  Transmission Date: 20070707
  Serious: Yes (Hospitalization)
  Sender: FDA-Public Use
  Company Number: DE-AVENTIS-200612369DE

PATIENT
  Age: 50 Year
  Sex: Female
  Weight: 53 kg

DRUGS (1)
  1. DOCETAXEL [Suspect]
     Indication: BREAST CANCER
     Dates: start: 20060804, end: 20060804

REACTIONS (3)
  - CARDIAC DISORDER [None]
  - RESPIRATORY DISORDER [None]
  - VISUAL ACUITY REDUCED [None]
